FAERS Safety Report 7610493-4 (Version None)
Quarter: 2011Q3

REPORT INFORMATION
  Report Type: 
  Country: None (occurrence: None)
  Receive Date: 20110715
  Receipt Date: 20091204
  Transmission Date: 20111222
  Serious: Yes (Other)
  Sender: FDA-Public Use
  Company Number: US-BAYER-200942470NA

PATIENT
  Age: 60 Year
  Sex: Male
  Weight: 113.38 kg

DRUGS (40)
  1. GABAPENTIN [Concomitant]
     Dosage: 300 MG, BID
     Route: 048
  2. TRAZODONE HCL [Concomitant]
     Dosage: 100MG AT BEDTIME
     Route: 048
  3. LIPITOR [Concomitant]
     Dosage: 10 MG, UNK
     Route: 048
  4. LIPITOR [Concomitant]
     Dosage: 80 MG ONE-HALF TABLET AT BED TIME
     Route: 048
  5. FUROSEMIDE [Concomitant]
     Route: 048
  6. MOTRIN [Concomitant]
     Route: 048
  7. PROPOFOL [Concomitant]
     Dosage: UNK
     Route: 042
     Dates: start: 20040712, end: 20040712
  8. PLATELETS [Concomitant]
     Dosage: 2 U, UNK
     Route: 042
     Dates: start: 20040712
  9. TRASYLOL [Suspect]
     Indication: CORONARY ARTERY BYPASS
     Dosage: 200 ML PUMP PRIME
     Route: 042
     Dates: start: 20040712, end: 20040712
  10. GABAPENTIN [Concomitant]
     Indication: PRODUCT USED FOR UNKNOWN INDICATION
     Dosage: 300 MG, UNK
     Route: 048
     Dates: end: 20040718
  11. LIPITOR [Concomitant]
     Dosage: 80 MG, UNK
     Route: 048
  12. ATENOLOL [Concomitant]
     Dosage: 25 MG, QD
     Route: 048
  13. ROSIGLITAZONE [Concomitant]
     Route: 048
  14. SULINDAC [Concomitant]
     Dosage: 200 MG, BID
     Route: 048
  15. ACETAMINOPHEN [Concomitant]
     Dosage: 500 MG THREE TIMES A DAY AS NEEDED
     Route: 048
  16. PROTAMINE SULFATE [Concomitant]
     Dosage: UNK
     Route: 042
     Dates: start: 20040712, end: 20040712
  17. TRAZODONE HCL [Concomitant]
     Indication: PRODUCT USED FOR UNKNOWN INDICATION
     Dosage: 100 MG, UNK
     Dates: end: 20040718
  18. IBUPROFEN [Concomitant]
     Dosage: 800 MG, UNK
     Route: 048
  19. MIRTAZAPINE [Concomitant]
     Dosage: 15 MG, QD
     Route: 048
  20. TESTOSTERONE [Concomitant]
     Dosage: 200 MG, UNK 1/2 ML EVERY WEEK
     Route: 030
  21. SERTRALINE HYDROCHLORIDE [Concomitant]
     Indication: PRODUCT USED FOR UNKNOWN INDICATION
     Dosage: 100 MG, UNK
     Route: 048
     Dates: end: 20040718
  22. AMOXICILLIN [Concomitant]
     Indication: PRODUCT USED FOR UNKNOWN INDICATION
     Dosage: 500 MG, UNK
     Dates: end: 20040717
  23. IBUPROFEN [Concomitant]
  24. HYDROCHLOROTHIAZIDE [Concomitant]
     Dosage: 25 MG, QD
     Route: 048
  25. GLUCOPHAGE [Concomitant]
     Dosage: 1000 MG TWO TABLETS PER DAY
     Route: 048
  26. ALPRAZOLAM [Concomitant]
     Dosage: 0.5 MG, QD
     Route: 048
  27. HEPARIN [Concomitant]
     Dosage: UNK
     Route: 042
     Dates: start: 20040712, end: 20040712
  28. TRASYLOL [Suspect]
     Dosage: 200ML LOADING DOSE
     Route: 042
     Dates: start: 20040712, end: 20040712
  29. TRASYLOL [Suspect]
     Dosage: 50ML/HR INFUSION
     Route: 042
     Dates: start: 20040712, end: 20040712
  30. ACETYLSALICYLIC ACID SRT [Concomitant]
     Dosage: 81 MG, QD
     Route: 048
  31. METFORMIN HCL [Concomitant]
     Dosage: 1000 MG, BID
     Route: 048
  32. CLOPIDOGREL BISULFATE [Concomitant]
     Dosage: 75 MG, QD
     Route: 048
  33. GLYBURIDE [Concomitant]
     Dosage: 10 MG, BID
     Route: 048
  34. PRILOSEC [Concomitant]
     Route: 048
  35. MIDAZOLAM HCL [Concomitant]
     Dosage: UNK
     Route: 042
     Dates: start: 20040712, end: 20040712
  36. FRESH FROZEN PLASMA [Concomitant]
     Dosage: 2 U, UNK
     Route: 042
     Dates: start: 20040712
  37. ZESTRIL [Concomitant]
     Route: 048
  38. IRBESARTAN [Concomitant]
     Dosage: 300 MG, QD
     Route: 048
  39. TIAZAC [Concomitant]
     Dosage: 180 MG, QD
     Route: 048
  40. LEVOFLOXACIN [Concomitant]
     Dosage: 500 MG, QD
     Route: 048

REACTIONS (14)
  - MULTI-ORGAN FAILURE [None]
  - RENAL INJURY [None]
  - EMOTIONAL DISTRESS [None]
  - LOWER RESPIRATORY TRACT INFECTION [None]
  - LOCALISED INFECTION [None]
  - STRESS [None]
  - INJURY [None]
  - RENAL IMPAIRMENT [None]
  - FEAR [None]
  - UNEVALUABLE EVENT [None]
  - RENAL FAILURE [None]
  - PAIN [None]
  - ANXIETY [None]
  - ANHEDONIA [None]
